FAERS Safety Report 10530108 (Version 4)
Quarter: 2016Q1

REPORT INFORMATION
  Report Type: Spontaneous
  Country: US (occurrence: US)
  Receive Date: 20141021
  Receipt Date: 20160111
  Transmission Date: 20160525
  Serious: Yes (Hospitalization, Other)
  Sender: FDA-Public Use
  Company Number: US-PFIZER INC-2014285649

PATIENT
  Age: 68 Year
  Sex: Male
  Weight: 73 kg

DRUGS (22)
  1. METFORMIN [Concomitant]
     Active Substance: METFORMIN HYDROCHLORIDE
     Dosage: 1000 MG, 2X/DAY (500MG TWO TABLETS BY MOUTH TWICE A DAY)
     Route: 048
  2. SUCRALFATE. [Concomitant]
     Active Substance: SUCRALFATE
  3. SUTENT [Suspect]
     Active Substance: SUNITINIB MALATE
     Dosage: 37.5 MG, 1X/DAY
     Route: 048
     Dates: start: 20140927, end: 20150803
  4. IRON [Concomitant]
     Active Substance: IRON
     Dosage: UNK
  5. PRAVACHOL [Concomitant]
     Active Substance: PRAVASTATIN SODIUM
     Dosage: UNK
  6. PANTOPRAZOLE SODIUM. [Concomitant]
     Active Substance: PANTOPRAZOLE SODIUM
     Dosage: UNK
  7. SUTENT [Suspect]
     Active Substance: SUNITINIB MALATE
     Dosage: 37.5 MG, 1X/DAY
     Route: 048
     Dates: start: 201401, end: 20140904
  8. PANTOPRAZOLE [Concomitant]
     Active Substance: PANTOPRAZOLE SODIUM
     Dosage: 80 MG, 2X/DAY, (40MG TWO TABLETS BY MOUTH TWICE A DAY)
  9. METFORMIN [Concomitant]
     Active Substance: METFORMIN HYDROCHLORIDE
     Indication: DIABETES MELLITUS
     Dosage: 500 MG, 2X/DAY
  10. TRADJENTA [Concomitant]
     Active Substance: LINAGLIPTIN
     Indication: DIABETES MELLITUS
     Dosage: 5 MG, DAILY
     Route: 048
  11. SUTENT [Suspect]
     Active Substance: SUNITINIB MALATE
     Indication: GASTRINOMA
     Dosage: 37.5 MG, 1X/DAY
     Route: 048
     Dates: start: 201302, end: 201401
  12. SANDOSTATIN [Concomitant]
     Active Substance: OCTREOTIDE ACETATE
     Indication: MALIGNANT NEOPLASM OF ISLETS OF LANGERHANS
     Dosage: UNK
     Dates: start: 200606
  13. RAPAMUNE [Concomitant]
     Active Substance: SIROLIMUS
     Indication: LIVER TRANSPLANT REJECTION
     Dosage: 4 MG, DAILY (1MG FOUR TABLETS BY MOUTH DAILY)
     Route: 048
  14. PROBIOTIC FORMULA [Concomitant]
  15. SANDOSTATIN [Concomitant]
     Active Substance: OCTREOTIDE ACETATE
     Indication: NEOPLASM PROGRESSION
     Dosage: 3 MG, MONTHLY
     Route: 030
     Dates: start: 200205, end: 200310
  16. SANDOSTATIN [Concomitant]
     Active Substance: OCTREOTIDE ACETATE
     Dosage: 4 MG, UNK
  17. COUMADIN [Concomitant]
     Active Substance: WARFARIN SODIUM
     Indication: THROMBOSIS
     Dosage: 3 MG, EVERY MONDAY, WEDNESDAY, AND FRIDAY
  18. COUMADIN [Concomitant]
     Active Substance: WARFARIN SODIUM
     Dosage: 4 MG, EVERY SUNDAY, TUESDAY, THURSDAY, AND SATURDAY
  19. WARFARIN SODIUM. [Concomitant]
     Active Substance: WARFARIN SODIUM
     Dosage: UNK
  20. CALCIUM + DVITAMIN D3 [Concomitant]
     Dosage: UNK
  21. IMODIUM A-D [Concomitant]
     Active Substance: LOPERAMIDE HYDROCHLORIDE
     Dosage: UNK
  22. FOLIC ACID. [Concomitant]
     Active Substance: FOLIC ACID
     Dosage: UNK

REACTIONS (7)
  - Gastrinoma [Not Recovered/Not Resolved]
  - Gastric disorder [Unknown]
  - Haemoglobin decreased [Recovered/Resolved]
  - Blood pressure increased [Not Recovered/Not Resolved]
  - Gastric haemorrhage [Recovered/Resolved]
  - Large intestinal haemorrhage [Recovered/Resolved]
  - Disease progression [Not Recovered/Not Resolved]

NARRATIVE: CASE EVENT DATE: 201302
